FAERS Safety Report 23901018 (Version 1)
Quarter: 2024Q2

REPORT INFORMATION
  Report Type: Spontaneous
  Country: US (occurrence: None)
  Receive Date: 20240526
  Receipt Date: 20240526
  Transmission Date: 20240715
  Serious: No
  Sender: FDA-Public Use
  Company Number: US-ROCHE-3492436

PATIENT
  Age: 34 Year
  Sex: Female

DRUGS (3)
  1. OCREVUS [Suspect]
     Active Substance: OCRELIZUMAB
     Indication: Relapsing-remitting multiple sclerosis
     Route: 042
     Dates: start: 20180219
  2. PREDNISONE [Concomitant]
     Active Substance: PREDNISONE
     Dates: start: 20240111
  3. BENADRYL [Concomitant]
     Active Substance: DIPHENHYDRAMINE HYDROCHLORIDE

REACTIONS (6)
  - Hot flush [Recovered/Resolved]
  - Hyperhidrosis [Unknown]
  - Nausea [Recovered/Resolved]
  - Hypotension [Unknown]
  - Dizziness [Unknown]
  - Visual impairment [Recovered/Resolved]

NARRATIVE: CASE EVENT DATE: 20240101
